FAERS Safety Report 8262930 (Version 2)
Quarter: 2014Q4

REPORT INFORMATION
  Report Type: Report from Study
  Country: US (occurrence: US)
  Receive Date: 20111125
  Receipt Date: 20141204
  Transmission Date: 20150529
  Serious: No
  Sender: FDA-Public Use
  Company Number: US-ROCHE-1013397

PATIENT
  Sex: Female

DRUGS (1)
  1. BONIVA [Suspect]
     Active Substance: IBANDRONATE SODIUM
     Indication: SENILE OSTEOPOROSIS
     Route: 048

REACTIONS (4)
  - Rash [Unknown]
  - Syncope [Unknown]
  - Obstruction [Unknown]
  - Drug dose omission [Unknown]
